FAERS Safety Report 14838720 (Version 1)
Quarter: 2018Q2

REPORT INFORMATION
  Report Type: Spontaneous
  Country: US (occurrence: US)
  Receive Date: 20180418
  Receipt Date: 20180418
  Transmission Date: 20180711
  Serious: Yes (Life-Threatening, Hospitalization)
  Sender: FDA-Public Use
  Company Number: None

PATIENT
  Age: 76 Year
  Sex: Female
  Weight: 88 kg

DRUGS (2)
  1. OLARATUMAB [Suspect]
     Active Substance: OLARATUMAB
     Indication: LEIOMYOSARCOMA METASTATIC
     Dosage: ?          OTHER FREQUENCY:ONCE;?
     Route: 042
  2. DOXORUBICIN [Suspect]
     Active Substance: DOXORUBICIN
     Indication: LEIOMYOSARCOMA METASTATIC
     Dosage: ?          OTHER FREQUENCY:ONCE;?
     Route: 042

REACTIONS (4)
  - Anaphylactic reaction [None]
  - Cardiac arrest [None]
  - Unresponsive to stimuli [None]
  - Cardiotoxicity [None]

NARRATIVE: CASE EVENT DATE: 20180212
